FAERS Safety Report 4505418-4 (Version None)
Quarter: 2004Q4

REPORT INFORMATION
  Report Type: 
  Country: None (occurrence: None)
  Receive Date: 20041116
  Receipt Date: 20041111
  Transmission Date: 20050328
  Serious: Yes (Hospitalization)
  Sender: FDA-Public Use
  Company Number: 200413093GDS

PATIENT
  Age: 73 Year
  Sex: Male
  Weight: 56 kg

DRUGS (4)
  1. ASPIRIN [Suspect]
     Indication: CARDIAC DISORDER
     Dosage: 100 MG, QD, ORAL
     Route: 048
  2. MELOXICAM [Suspect]
     Indication: PAIN
     Dosage: 15 MG, TOTAL DAILY, ORAL
     Route: 048
  3. LISINOPRIL [Suspect]
     Indication: HYPERTENSION
     Dosage: ORAL
     Route: 048
     Dates: start: 20030504
  4. ESOMEPRAZOLE [Suspect]
     Indication: GASTRIC ULCER
     Dosage: ORAL
     Route: 048
     Dates: start: 20040101

REACTIONS (1)
  - ALVEOLITIS [None]
